FAERS Safety Report 8792309 (Version 2)
Quarter: 2015Q2

REPORT INFORMATION
  Report Type: Report from Study
  Country: US (occurrence: US)
  Receive Date: 20120917
  Receipt Date: 20150402
  Transmission Date: 20150821
  Serious: Yes (Death)
  Sender: FDA-Public Use
  Company Number: US-ROCHE-1129298

PATIENT
  Sex: Female

DRUGS (2)
  1. AVASTIN [Suspect]
     Active Substance: BEVACIZUMAB
     Indication: MALIGNANT NEOPLASM OF UTERINE ADNEXA
     Dosage: TREATMENT RECEIVED IN WILMINGTON
     Route: 065
     Dates: start: 20081210
  2. AVASTIN [Suspect]
     Active Substance: BEVACIZUMAB
     Indication: OVARIAN CANCER
     Dosage: FIRST TREATMENT IN NOV-2008 IN FLORIDA
     Route: 042
     Dates: start: 200811

REACTIONS (2)
  - Death [Fatal]
  - Off label use [Unknown]
